FAERS Safety Report 9672426 (Version 1)
Quarter: 2013Q4

REPORT INFORMATION
  Report Type: Spontaneous
  Country: ES (occurrence: None)
  Receive Date: 20131105
  Receipt Date: 20131105
  Transmission Date: 20140711
  Serious: Yes (Hospitalization, Disabling)
  Sender: FDA-Public Use
  Company Number: 2013P1020548

PATIENT
  Age: 66 Year
  Sex: Female

DRUGS (2)
  1. MORPHINE [Suspect]
     Indication: STERNOTOMY
     Route: 050
  2. MORPHINE [Suspect]
     Indication: PROCEDURAL PAIN
     Route: 050

REACTIONS (5)
  - Infusion site granuloma [None]
  - Back pain [None]
  - Paraparesis [None]
  - Walking disability [None]
  - Myelopathy [None]
